FAERS Safety Report 6028879-0 (Version None)
Quarter: 2009Q1

REPORT INFORMATION
  Report Type: 
  Country: None (occurrence: None)
  Receive Date: 20090105
  Receipt Date: 20090105
  Transmission Date: 20090719
  Serious: Yes (Hospitalization)
  Sender: FDA-Public Use
  Company Number: None

PATIENT
  Sex: Female
  Weight: 139 kg

DRUGS (7)
  1. NOLVADEX [Suspect]
     Dosage: 20 MG
     Dates: end: 20081229
  2. ADVAIR DISKUS 250/50 [Concomitant]
  3. ALBUTEROL [Concomitant]
  4. ALLLEGRA [Concomitant]
  5. HYDROCHLOROTHIAZIDE [Concomitant]
  6. RHINOCORT [Concomitant]
  7. SINGULAIR [Concomitant]

REACTIONS (1)
  - DEEP VEIN THROMBOSIS [None]
